FAERS Safety Report 4995354-1 (Version None)
Quarter: 2006Q2

REPORT INFORMATION
  Report Type: 
  Country: None (occurrence: None)
  Receive Date: 20060508
  Receipt Date: 20040601
  Transmission Date: 20061013
  Serious: Yes (Other)
  Sender: FDA-Public Use
  Company Number: DE-BRISTOL-MYERS SQUIBB COMPANY-13340724

PATIENT
  Age: 35 Year
  Sex: Female
  Weight: 79 kg

DRUGS (13)
  1. SUSTIVA [Suspect]
     Indication: HIV INFECTION
     Dosage: STOPPED DEC-2002, RESTARTED DEC-2002
     Dates: start: 20020601, end: 20031001
  2. REYATAZ [Suspect]
     Indication: HIV INFECTION
     Dates: start: 20040101
  3. ZERIT [Suspect]
     Indication: HIV INFECTION
     Dosage: STOPPED IN 2002, RESTARTED DEC-2002
     Dates: start: 19961201, end: 20031001
  4. VIDEX [Suspect]
     Indication: HIV INFECTION
     Dates: start: 20021201, end: 20031001
  5. LAMIVUDINE [Concomitant]
     Indication: HIV INFECTION
     Dates: start: 19961201, end: 20020101
  6. INDINIVIR SULFATE [Concomitant]
     Indication: HIV INFECTION
     Dates: start: 19961201, end: 20020101
  7. RITONAVIR [Concomitant]
     Indication: HIV INFECTION
     Dosage: STOPPED 2002, RESTARTED JAN 2004
     Dates: start: 19961201
  8. TENOFOVIR [Concomitant]
     Indication: HIV INFECTION
     Dosage: STOPPED DEC-2002, RESTARTED JAN-2004
     Dates: start: 20020601
  9. CRIXIVAN [Concomitant]
     Indication: HIV INFECTION
     Dates: start: 20020601, end: 20021201
  10. KALETRA [Concomitant]
     Indication: HIV INFECTION
     Dosage: LOPINAVIR 400 MG/RITONAVIR 100 MG
     Dates: start: 20020601, end: 20021201
  11. EMTRICITABINE [Concomitant]
     Indication: HIV INFECTION
     Dates: start: 20040101
  12. CO-TRIMOXAZOLE [Concomitant]
     Dates: start: 20021201
  13. L-THYROXINE [Concomitant]
     Dates: start: 20021201

REACTIONS (11)
  - ABDOMINAL PAIN [None]
  - BLOOD BILIRUBIN INCREASED [None]
  - BLOOD TRIGLYCERIDES INCREASED [None]
  - DRUG INEFFECTIVE [None]
  - FATIGUE [None]
  - HEPATIC STEATOSIS [None]
  - HEPATOMEGALY [None]
  - HYPERLACTACIDAEMIA [None]
  - MYALGIA [None]
  - NAUSEA [None]
  - TRANSAMINASES INCREASED [None]
